FAERS Safety Report 10246695 (Version 1)
Quarter: 2014Q2

REPORT INFORMATION
  Report Type: Spontaneous
  Country: US (occurrence: US)
  Receive Date: 20140619
  Receipt Date: 20140619
  Transmission Date: 20141212
  Serious: Yes (Death, Hospitalization)
  Sender: FDA-Public Use
  Company Number: US-MYLANLABS-2014S1014018

PATIENT
  Age: 17 Year
  Sex: Female

DRUGS (2)
  1. LITHIUM [Suspect]
     Indication: AFFECTIVE DISORDER
     Route: 065
  2. TOPIRAMATE [Concomitant]
     Indication: AFFECTIVE DISORDER
     Route: 065

REACTIONS (9)
  - Status epilepticus [Fatal]
  - Serotonin syndrome [Fatal]
  - Metabolic acidosis [Fatal]
  - Rhabdomyolysis [Fatal]
  - Transaminases increased [Fatal]
  - Renal failure acute [Fatal]
  - Hypokalaemia [Fatal]
  - Hypocalcaemia [Fatal]
  - Brain oedema [Fatal]
